FAERS Safety Report 6675517-X (Version None)
Quarter: 2010Q2

REPORT INFORMATION
  Report Type: 
  Country: None (occurrence: None)
  Receive Date: 20100409
  Receipt Date: 20100330
  Transmission Date: 20101027
  Serious: Yes (Life-Threatening, Hospitalization, Other)
  Sender: FDA-Public Use
  Company Number: GR-TEVA-229985ISR

PATIENT
  Age: 47 Year
  Sex: Male
  Weight: 78 kg

DRUGS (5)
  1. AZILECT [Suspect]
     Indication: PARKINSON'S DISEASE
     Route: 048
     Dates: start: 20081002, end: 20090930
  2. AZILECT [Concomitant]
  3. PRAMIPEXOLE DIHYDROCHLORIDE [Concomitant]
     Route: 048
     Dates: start: 20050707
  4. STALEVO 100 [Concomitant]
     Route: 048
     Dates: start: 20080505
  5. SERTRALINE HCL [Concomitant]
     Route: 048
     Dates: start: 20051019

REACTIONS (1)
  - THROMBOCYTOPENIA [None]
